FAERS Safety Report 13882162 (Version 2)
Quarter: 2017Q3

REPORT INFORMATION
  Report Type: Spontaneous
  Country: CN (occurrence: CN)
  Receive Date: 20170818
  Receipt Date: 20170822
  Transmission Date: 20171127
  Serious: Yes (Hospitalization, Other)
  Sender: FDA-Public Use
  Company Number: CN-ASTELLAS-2017US032973

PATIENT
  Age: 41 Year
  Sex: Female
  Weight: 53 kg

DRUGS (9)
  1. MYCOPHENOLATE MOFETIL. [Interacting]
     Active Substance: MYCOPHENOLATE MOFETIL
     Indication: RENAL TRANSPLANT
     Dosage: UNK, UNKNOWN FREQ.
     Route: 048
  2. TRIPTERYGIUM SPP. TOTAL GLYCOSIDE EXTRACT [Suspect]
     Active Substance: HERBALS
     Indication: RENAL TRANSPLANT
     Dosage: UNK, UNKNOWN FREQ.
     Route: 048
  3. TACROLIMUS. [Suspect]
     Active Substance: TACROLIMUS
     Indication: RENAL TRANSPLANT
     Dosage: UNK UNK, UNKNOWN FREQ.
     Route: 048
  4. TACROLIMUS. [Interacting]
     Active Substance: TACROLIMUS
     Route: 048
  5. MYCOPHENOLATE MOFETIL. [Interacting]
     Active Substance: MYCOPHENOLATE MOFETIL
     Route: 048
  6. RIFABUTIN. [Interacting]
     Active Substance: RIFABUTIN
     Indication: INTESTINAL TUBERCULOSIS
     Dosage: 0.15 G, ONCE DAILY
     Route: 065
  7. METHYLPREDNISOLONE. [Suspect]
     Active Substance: METHYLPREDNISOLONE
     Route: 048
  8. TRIPTERYGIUM SPP. TOTAL GLYCOSIDE EXTRACT [Suspect]
     Active Substance: HERBALS
     Route: 048
  9. METHYLPREDNISOLONE. [Suspect]
     Active Substance: METHYLPREDNISOLONE
     Indication: RENAL TRANSPLANT
     Dosage: UNK, UNKNOWN FREQ.
     Route: 048

REACTIONS (17)
  - Ascites [Unknown]
  - Peritoneal tuberculosis [Unknown]
  - Respiratory failure [Unknown]
  - Immunosuppressant drug level decreased [Unknown]
  - Chronic kidney disease [Unknown]
  - Laparotomy [Unknown]
  - Pneumonia [Unknown]
  - Lung infection [Unknown]
  - Cholecystitis [Unknown]
  - Poor quality sleep [Unknown]
  - Abdominal cavity drainage [Unknown]
  - Kidney transplant rejection [Unknown]
  - Multiple organ dysfunction syndrome [Unknown]
  - Intestinal tuberculosis [Unknown]
  - Cardiac failure acute [Unknown]
  - Hepatic function abnormal [Unknown]
  - Drug interaction [Unknown]
